FAERS Safety Report 18632239 (Version 1)
Quarter: 2020Q4

REPORT INFORMATION
  Report Type: Report from Study
  Country: None (occurrence: US)
  Receive Date: 20201218
  Receipt Date: 20201218
  Transmission Date: 20210114
  Serious: Yes (Other)
  Sender: FDA-Public Use
  Company Number: US-ABBVIE-20K-163-3691448-00

PATIENT
  Age: 48 Year
  Sex: Female

DRUGS (1)
  1. HUMIRA [Suspect]
     Active Substance: ADALIMUMAB
     Indication: RHEUMATOID ARTHRITIS
     Route: 058

REACTIONS (9)
  - Arthralgia [Unknown]
  - Meningioma [Unknown]
  - Extraocular muscle disorder [Unknown]
  - Diplopia [Unknown]
  - Intracranial mass [Unknown]
  - Back pain [Unknown]
  - Joint swelling [Unknown]
  - Stress [Unknown]
  - Pain in extremity [Unknown]

NARRATIVE: CASE EVENT DATE: 202011
